FAERS Safety Report 16136262 (Version 1)
Quarter: 2019Q2

REPORT INFORMATION
  Report Type: Spontaneous
  Country: US (occurrence: US)
  Receive Date: 20190329
  Receipt Date: 20190329
  Transmission Date: 20190711
  Serious: No
  Sender: FDA-Public Use
  Company Number: US-BAUSCH-BL-2019-008489

PATIENT
  Sex: Female

DRUGS (1)
  1. TRETINOIN 0.05% [Suspect]
     Active Substance: TRETINOIN
     Indication: PRODUCT USED FOR UNKNOWN INDICATION
     Dosage: 45 GM, STARTED SEVERAL MONTHS AGO
     Route: 061

REACTIONS (3)
  - Product odour abnormal [Unknown]
  - Ill-defined disorder [Unknown]
  - Treatment noncompliance [Unknown]
